FAERS Safety Report 6694510-4 (Version None)
Quarter: 2010Q2

REPORT INFORMATION
  Report Type: 
  Country: None (occurrence: None)
  Receive Date: 20100423
  Receipt Date: 20100413
  Transmission Date: 20101027
  Serious: Yes (Hospitalization)
  Sender: FDA-Public Use
  Company Number: US-AMGEN-QUU406032

PATIENT
  Sex: Female

DRUGS (1)
  1. ENBREL [Suspect]
     Indication: RHEUMATOID ARTHRITIS
     Route: 058
     Dates: start: 20100101

REACTIONS (6)
  - ERYTHEMA [None]
  - FEELING HOT [None]
  - INJECTION SITE PAIN [None]
  - OXYGEN SATURATION DECREASED [None]
  - PRURITUS [None]
  - RESPIRATORY DISORDER [None]
